FAERS Safety Report 5622630-1 (Version None)
Quarter: 2008Q1

REPORT INFORMATION
  Report Type: 
  Country: None (occurrence: None)
  Receive Date: 20080211
  Receipt Date: 20080211
  Transmission Date: 20080703
  Serious: Yes (Hospitalization)
  Sender: FDA-Public Use
  Company Number: None

PATIENT
  Age: 51 Year
  Sex: Male

DRUGS (2)
  1. LISINOPRIL [Suspect]
     Indication: HYPERTENSION
     Dosage: 40MG EVERY DAY PO
     Route: 048
     Dates: start: 20061212, end: 20071212
  2. GEMFIBROZIL [Suspect]
     Dosage: 600MG BID PO
     Route: 048
     Dates: start: 20060707, end: 20071212

REACTIONS (3)
  - DIARRHOEA [None]
  - HYPERKALAEMIA [None]
  - RENAL FAILURE ACUTE [None]
